FAERS Safety Report 14729190 (Version 1)
Quarter: 2018Q2

REPORT INFORMATION
  Report Type: Spontaneous
  Country: NO (occurrence: NO)
  Receive Date: 20180406
  Receipt Date: 20180406
  Transmission Date: 20180711
  Serious: Yes (Other)
  Sender: FDA-Public Use
  Company Number: NO-TEVA-2018-NO-877144

PATIENT
  Age: 46 Year
  Sex: Male
  Weight: 135 kg

DRUGS (12)
  1. RITALIN [Suspect]
     Active Substance: METHYLPHENIDATE HYDROCHLORIDE
     Indication: ATTENTION DEFICIT/HYPERACTIVITY DISORDER
     Dates: start: 20090615
  2. FOLIC ACID. [Concomitant]
     Active Substance: FOLIC ACID
  3. SOMAC [Concomitant]
     Active Substance: PANTOPRAZOLE SODIUM
     Dates: start: 20150101
  4. VITAMIN C [Concomitant]
     Active Substance: ASCORBIC ACID
  5. RITALIN [Suspect]
     Active Substance: METHYLPHENIDATE HYDROCHLORIDE
     Dates: start: 20090610
  6. OMNIC [Concomitant]
     Active Substance: TAMSULOSIN HYDROCHLORIDE
     Dates: start: 20160201
  7. OMEGA 3 [Concomitant]
     Active Substance: OMEGA-3 FATTY ACIDS
  8. MORFIN [Suspect]
     Active Substance: MORPHINE SULFATE
     Indication: PAIN
     Route: 065
     Dates: start: 20171001
  9. KESTINE [Concomitant]
     Active Substance: EBASTINE
     Dates: start: 20090101
  10. CIALIS [Concomitant]
     Active Substance: TADALAFIL
     Dates: start: 20170101
  11. FENTANYL SANDOZ [Suspect]
     Active Substance: FENTANYL
     Indication: PAIN
     Dosage: FENTANYL 50MCG / HOUR TRANSDERMAL PATCHES THAT ARE CHANGED EVERY 3 DAYS
     Route: 023
     Dates: start: 20151017
  12. ABILIFY [Concomitant]
     Active Substance: ARIPIPRAZOLE
     Dates: start: 20080101

REACTIONS (2)
  - Somnolence [Not Recovered/Not Resolved]
  - Central nervous system stimulation [Not Recovered/Not Resolved]

NARRATIVE: CASE EVENT DATE: 20171020
